FAERS Safety Report 5321125-2 (Version None)
Quarter: 2007Q2

REPORT INFORMATION
  Report Type: 
  Country: None (occurrence: None)
  Receive Date: 20070510
  Receipt Date: 20070430
  Transmission Date: 20071010
  Serious: Yes (Hospitalization, Other)
  Sender: FDA-Public Use
  Company Number: US-AMGEN-KDL212140

PATIENT
  Sex: Female

DRUGS (2)
  1. ENBREL [Suspect]
     Indication: RHEUMATOID ARTHRITIS
     Route: 058
     Dates: start: 20041201, end: 20070201
  2. ENBREL [Suspect]
     Indication: SJOGREN'S SYNDROME

REACTIONS (9)
  - ARTHRALGIA [None]
  - BLOOD GLUCOSE DECREASED [None]
  - BLOOD SODIUM DECREASED [None]
  - CANDIDIASIS [None]
  - CONTUSION [None]
  - DIZZINESS [None]
  - FATIGUE [None]
  - HERPES ZOSTER [None]
  - SYNCOPE [None]
